FAERS Safety Report 16206432 (Version 2)
Quarter: 2025Q2

REPORT INFORMATION
  Report Type: Spontaneous
  Country: PL (occurrence: PL)
  Receive Date: 20190417
  Receipt Date: 20250401
  Transmission Date: 20250716
  Serious: Yes (Other)
  Sender: ROCHE
  Company Number: PL-ROCHE-2303130

PATIENT
  Sex: Female

DRUGS (1)
  1. HERCEPTIN [Suspect]
     Active Substance: TRASTUZUMAB
     Indication: Breast cancer
     Route: 065

REACTIONS (7)
  - Asthenia [Unknown]
  - Skin burning sensation [Unknown]
  - Neuropathy peripheral [Unknown]
  - Immunodeficiency [Unknown]
  - Ill-defined disorder [Unknown]
  - Ill-defined disorder [Unknown]
  - Pyrexia [Unknown]
